FAERS Safety Report 8837101 (Version 1)
Quarter: 2012Q4

REPORT INFORMATION
  Report Type: 
  Country: US (occurrence: US)
  Receive Date: 20121011
  Receipt Date: 20121011
  Transmission Date: 20130627
  Serious: No
  Sender: FDA-Public Use
  Company Number: US-TEVA-363382USA

PATIENT
  Age: 27 Year
  Sex: Female

DRUGS (1)
  1. PLAN B [Suspect]
     Dates: start: 2008

REACTIONS (1)
  - Menstruation irregular [Unknown]
